FAERS Safety Report 11548548 (Version 1)
Quarter: 2015Q3

REPORT INFORMATION
  Report Type: Spontaneous
  Country: US (occurrence: US)
  Receive Date: 20150903
  Receipt Date: 20150903
  Transmission Date: 20151125
  Serious: No
  Sender: FDA-Public Use
  Company Number: US-ELI_LILLY_AND_COMPANY-US201304003705

PATIENT
  Sex: Female

DRUGS (3)
  1. HUMALOG MIX75/25 [Suspect]
     Active Substance: INSULIN LISPRO
     Dosage: UNK
     Dates: start: 201302
  2. TRAMADOL. [Concomitant]
     Active Substance: TRAMADOL
     Dosage: 1 DF, QD
  3. TRAMADOL. [Concomitant]
     Active Substance: TRAMADOL
     Dosage: 2 DF, QD

REACTIONS (4)
  - Peripheral coldness [Recovering/Resolving]
  - Drug effect incomplete [Unknown]
  - Blood glucose decreased [Unknown]
  - Blood glucose increased [Unknown]
